FAERS Safety Report 24525555 (Version 1)
Quarter: 2024Q4

REPORT INFORMATION
  Report Type: Spontaneous
  Country: GB (occurrence: GB)
  Receive Date: 20241020
  Receipt Date: 20241020
  Transmission Date: 20250115
  Serious: Yes (Death, Life-Threatening, Hospitalization, Other)
  Sender: AUROBINDO
  Company Number: GB-MHRA-MED-202410020955484280-TVLZQ

PATIENT
  Age: 75 Year
  Sex: Female

DRUGS (3)
  1. NITROFURANTOIN [Suspect]
     Active Substance: NITROFURANTOIN
     Indication: Adverse drug reaction
     Dosage: 100 MILLIGRAM, ONCE A DAY (AT NIGHT)
     Route: 065
     Dates: start: 20190627
  2. NITROFURANTOIN [Suspect]
     Active Substance: NITROFURANTOIN
     Indication: Urinary tract infection
  3. INDAPAMIDE [Concomitant]
     Active Substance: INDAPAMIDE
     Indication: Hypertension
     Dosage: UNK
     Route: 065
     Dates: start: 20230118

REACTIONS (4)
  - Autoimmune hepatitis [Fatal]
  - Jaundice [Not Recovered/Not Resolved]
  - Sepsis [Not Recovered/Not Resolved]
  - Confusional state [Not Recovered/Not Resolved]
